FAERS Safety Report 11980502 (Version 2)
Quarter: 2016Q1

REPORT INFORMATION
  Report Type: Spontaneous
  Country: US (occurrence: US)
  Receive Date: 20160129
  Receipt Date: 20160225
  Transmission Date: 20160526
  Serious: No
  Sender: FDA-Public Use
  Company Number: US-PFIZER INC-2016046377

PATIENT
  Age: 70 Year
  Sex: Male

DRUGS (4)
  1. ATORVASTATIN CALCIUM. [Suspect]
     Active Substance: ATORVASTATIN CALCIUM
     Indication: BLOOD CHOLESTEROL ABNORMAL
     Dosage: 20 MG, (20MG TABLET, BY MOUTH, EVERY NIGHT)
     Route: 048
  2. BABY ASPIRIN [Concomitant]
     Active Substance: ASPIRIN
     Indication: BLOOD DISORDER
     Dosage: 81 MG, (81MG, ONE AT NIGHT AFTER SUPPER)
  3. COENZYME Q10 [Suspect]
     Active Substance: UBIDECARENONE
     Indication: LIMB INJURY
     Dosage: 100 MG, DAILY (100MG SOFT GELS, BY MOUTH, ONE A DAY IN THE MORNING)
     Route: 048
  4. VITAMIN D [Concomitant]
     Active Substance: CHOLECALCIFEROL
     Indication: BONE DISORDER
     Dosage: 2000 MG, DAILY

REACTIONS (1)
  - Eczema [Not Recovered/Not Resolved]
